FAERS Safety Report 7660827-X (Version None)
Quarter: 2011Q3

REPORT INFORMATION
  Report Type: 
  Country: None (occurrence: None)
  Receive Date: 20110805
  Receipt Date: 20101110
  Transmission Date: 20111222
  Serious: No
  Sender: FDA-Public Use
  Company Number: US-ABBOTT-10P-163-0684455-00

PATIENT
  Sex: Male
  Weight: 74.91 kg

DRUGS (4)
  1. NIASPAN [Suspect]
     Indication: BLOOD CHOLESTEROL
  2. LAVAZA [Concomitant]
     Indication: PRODUCT USED FOR UNKNOWN INDICATION
  3. ADVICOR [Concomitant]
     Indication: PRODUCT USED FOR UNKNOWN INDICATION
     Dosage: 1000/40
  4. LOTREL [Concomitant]
     Indication: HYPERTENSION
     Dosage: 5/10

REACTIONS (1)
  - FLUSHING [None]
